FAERS Safety Report 16145053 (Version 2)
Quarter: 2019Q2

REPORT INFORMATION
  Report Type: Spontaneous
  Country: JP (occurrence: JP)
  Receive Date: 20190402
  Receipt Date: 20190411
  Transmission Date: 20190711
  Serious: Yes (Other)
  Sender: FDA-Public Use
  Company Number: JP-TEVA-2019-JP-1032560

PATIENT
  Age: 69 Year
  Sex: Male

DRUGS (3)
  1. METHYLPREDNISOLONE. [Suspect]
     Active Substance: METHYLPREDNISOLONE
     Indication: SYMPATHETIC OPHTHALMIA
     Route: 041
  2. METHOTREXATE. [Suspect]
     Active Substance: METHOTREXATE
     Indication: SYMPATHETIC OPHTHALMIA
     Dosage: (0.1 MG/KG)
     Route: 065
  3. PREDNISOLONE. [Suspect]
     Active Substance: PREDNISOLONE
     Indication: SYMPATHETIC OPHTHALMIA
     Dosage: SLOW TAPER
     Route: 065

REACTIONS (4)
  - Hyperglycaemia [Unknown]
  - Pancytopenia [Unknown]
  - Hepatic failure [Unknown]
  - Intraocular pressure increased [Recovered/Resolved]
